FAERS Safety Report 7585529-X (Version None)
Quarter: 2011Q2

REPORT INFORMATION
  Report Type: 
  Country: None (occurrence: None)
  Receive Date: 20110531
  Receipt Date: 20100624
  Transmission Date: 20111010
  Serious: Yes (Other)
  Sender: FDA-Public Use
  Company Number: WAES 1006USA03975

PATIENT
  Age: 5 Year
  Sex: Male

DRUGS (1)
  1. JANUMET [Suspect]
     Indication: DIABETES MELLITUS
     Dosage: PO
     Route: 048

REACTIONS (1)
  - PANCREATITIS [None]
